FAERS Safety Report 9369697 (Version 4)
Quarter: 2013Q4

REPORT INFORMATION
  Report Type: Spontaneous
  Country: US (occurrence: US)
  Receive Date: 20130626
  Receipt Date: 20131022
  Transmission Date: 20140711
  Serious: Yes (Other)
  Sender: FDA-Public Use
  Company Number: US-JNJFOC-20130608562

PATIENT
  Age: 76 Year
  Sex: Female
  Weight: 86.18 kg

DRUGS (11)
  1. LEVAQUIN [Suspect]
     Indication: BRONCHITIS
     Route: 048
     Dates: start: 201301, end: 201301
  2. MAGNESIUM [Concomitant]
     Indication: PRODUCT USED FOR UNKNOWN INDICATION
     Route: 065
  3. AMITRIPTYLINE [Concomitant]
     Indication: PRODUCT USED FOR UNKNOWN INDICATION
     Route: 065
  4. POTASSIUM [Concomitant]
     Indication: PRODUCT USED FOR UNKNOWN INDICATION
     Route: 065
  5. VITAMINS NOS [Concomitant]
     Indication: PRODUCT USED FOR UNKNOWN INDICATION
     Route: 065
     Dates: start: 2012
  6. ATACAND [Concomitant]
     Indication: BLOOD PRESSURE
     Route: 048
     Dates: start: 2012
  7. CHLORTHALIDONE [Concomitant]
     Indication: BLOOD PRESSURE
     Route: 048
     Dates: start: 2012
  8. CHLORTHALIDONE [Concomitant]
     Indication: FLUID RETENTION
     Route: 048
     Dates: start: 2012
  9. SYNTHROID [Concomitant]
     Indication: BASEDOW^S DISEASE
     Route: 048
  10. SYNTHROID [Concomitant]
     Indication: THYROID DISORDER
     Route: 048
  11. PRAZEPAM [Concomitant]
     Indication: PRODUCT USED FOR UNKNOWN INDICATION
     Route: 065

REACTIONS (6)
  - Pain in jaw [Recovered/Resolved]
  - Tendonitis [Not Recovered/Not Resolved]
  - Tendon rupture [Unknown]
  - Adverse event [Not Recovered/Not Resolved]
  - Impaired driving ability [Not Recovered/Not Resolved]
  - Muscular weakness [Not Recovered/Not Resolved]
